FAERS Safety Report 6847849-3 (Version None)
Quarter: 2010Q3

REPORT INFORMATION
  Report Type: 
  Country: None (occurrence: None)
  Receive Date: 20100716
  Receipt Date: 20100705
  Transmission Date: 20110219
  Serious: Yes (Hospitalization)
  Sender: FDA-Public Use
  Company Number: DE-ELI_LILLY_AND_COMPANY-DE201007002152

PATIENT
  Sex: Male
  Weight: 60 kg

DRUGS (13)
  1. GEMCITABINE HYDROCHLORIDE [Suspect]
     Indication: NON-SMALL CELL LUNG CANCER
     Dosage: 21 DAYS/CYCLE
     Route: 065
     Dates: start: 20100607
  2. CISPLATIN [Suspect]
     Indication: NON-SMALL CELL LUNG CANCER
     Dosage: 21 DAYS/CYCLE
     Route: 065
     Dates: start: 20100607
  3. ASPIRIN [Concomitant]
     Indication: HYPERTENSION
     Dates: start: 20000101
  4. TOREM [Concomitant]
     Indication: HYPERTENSION
     Dates: start: 20000101
  5. CARVEDILOL [Concomitant]
     Indication: HYPERTENSION
     Dates: start: 20000101
  6. ENALAPRIL MALEATE [Concomitant]
     Indication: HYPERTENSION
     Dates: start: 20000101
  7. LOCOL [Concomitant]
     Indication: PROPHYLAXIS
     Dates: start: 20100101
  8. OMEPRAZOLE [Concomitant]
     Indication: GASTRITIS
     Dates: start: 20090101
  9. TAMSULOSIN HCL [Concomitant]
     Indication: BENIGN PROSTATIC HYPERPLASIA
     Dates: start: 19950101
  10. DURAGESIC-100 [Concomitant]
     Indication: ABDOMINAL PAIN UPPER
     Dates: start: 20100513
  11. BERLOSIN [Concomitant]
     Indication: ABDOMINAL PAIN UPPER
  12. MCP [Concomitant]
     Indication: ABDOMINAL PAIN UPPER
     Dates: start: 20100513
  13. FORTIMEL [Concomitant]
     Indication: SUPPLEMENTATION THERAPY
     Dates: start: 20100622

REACTIONS (1)
  - CEREBRAL HAEMORRHAGE [None]
